FAERS Safety Report 7217100-3 (Version None)
Quarter: 2011Q1

REPORT INFORMATION
  Report Type: 
  Country: None (occurrence: None)
  Receive Date: 20110110
  Receipt Date: 20101223
  Transmission Date: 20110831
  Serious: Yes (Hospitalization)
  Sender: FDA-Public Use
  Company Number: US-SANOFI-AVENTIS-2010SA068569

PATIENT
  Age: 69 Year
  Sex: Male

DRUGS (7)
  1. INVESTIGATIONAL DRUG [Suspect]
     Indication: EMBOLISM ARTERIAL
     Route: 048
     Dates: start: 20100728, end: 20101021
  2. TRAMADOL [Concomitant]
  3. TOLPERISONE [Concomitant]
  4. ENOXAPARIN SODIUM [Suspect]
     Indication: EMBOLISM ARTERIAL
     Route: 058
     Dates: start: 20100728
  5. WARFARIN [Suspect]
     Indication: EMBOLISM ARTERIAL
     Route: 048
     Dates: start: 20100728, end: 20101021
  6. RAMIPRIL [Concomitant]
  7. METAMIZOLE [Suspect]
     Indication: BONE PAIN
     Route: 048
     Dates: start: 20101018, end: 20101022

REACTIONS (3)
  - HAEMATEMESIS [None]
  - DUODENAL ULCER [None]
  - ABDOMINAL PAIN UPPER [None]
